FAERS Safety Report 9490905 (Version 1)
Quarter: 2013Q3

REPORT INFORMATION
  Report Type: Spontaneous
  Country: GB (occurrence: US)
  Receive Date: 20130830
  Receipt Date: 20130830
  Transmission Date: 20140515
  Serious: Yes (Other)
  Sender: FDA-Public Use
  Company Number: GB-JNJFOC-20130811481

PATIENT
  Sex: Male

DRUGS (2)
  1. STELARA [Suspect]
     Indication: PSORIASIS
     Route: 058
  2. ARTHROTEC [Concomitant]
     Route: 065

REACTIONS (2)
  - Cyst removal [Recovered/Resolved]
  - Psoriasis [Not Recovered/Not Resolved]
